FAERS Safety Report 10598066 (Version 1)
Quarter: 2014Q4

REPORT INFORMATION
  Report Type: Spontaneous
  Country: US (occurrence: US)
  Receive Date: 20141121
  Receipt Date: 20141121
  Transmission Date: 20150529
  Serious: Yes (Hospitalization, Other)
  Sender: FDA-Public Use
  Company Number: US-PFIZER INC-2014318521

PATIENT
  Age: 96 Year
  Sex: Male

DRUGS (1)
  1. TOVIAZ [Suspect]
     Active Substance: FESOTERODINE FUMARATE
     Dosage: 8 MG, DAILY

REACTIONS (8)
  - Somnolence [Unknown]
  - Cardiac disorder [Unknown]
  - Swollen tongue [Unknown]
  - Lip swelling [Unknown]
  - Dry mouth [Unknown]
  - Balance disorder [Unknown]
  - Mouth swelling [Unknown]
  - Fall [Unknown]
